FAERS Safety Report 23197943 (Version 1)
Quarter: 2023Q4

REPORT INFORMATION
  Report Type: Spontaneous
  Country: US (occurrence: None)
  Receive Date: 20231117
  Receipt Date: 20231117
  Transmission Date: 20240109
  Serious: No
  Sender: FDA-Public Use
  Company Number: None

PATIENT
  Age: 71 Year
  Sex: Female

DRUGS (3)
  1. MYCOPHENOLIC ACID [Suspect]
     Active Substance: MYCOPHENOLIC ACID
     Indication: Prophylaxis against transplant rejection
     Dosage: MYCOPHENOLATE  500 MG 1 QAM AND 2QPM?
     Route: 048
     Dates: start: 20230617
  2. TACROLIMUS [Concomitant]
     Active Substance: TACROLIMUS
     Dosage: TACROLIMUS   1.5 MG DAILY ORAL?
     Route: 048
     Dates: start: 20230617
  3. METFORMIN [Suspect]
     Active Substance: METFORMIN HYDROCHLORIDE

REACTIONS (1)
  - Myopathy [None]

NARRATIVE: CASE EVENT DATE: 20230919
